FAERS Safety Report 24894621 (Version 1)
Quarter: 2025Q1

REPORT INFORMATION
  Report Type: Spontaneous
  Country: US (occurrence: None)
  Receive Date: 20250127
  Receipt Date: 20250127
  Transmission Date: 20250409
  Serious: Yes (Life-Threatening)
  Sender: FDA-CTU
  Company Number: None

PATIENT
  Age: 69 Year
  Sex: Female
  Weight: 81 kg

DRUGS (1)
  1. KRYSTEXXA [Suspect]
     Active Substance: PEGLOTICASE
     Indication: Gout
     Route: 042

REACTIONS (5)
  - Skin discolouration [None]
  - Loss of consciousness [None]
  - Pulse absent [None]
  - Respiratory arrest [None]
  - Infusion related reaction [None]

NARRATIVE: CASE EVENT DATE: 20250118
